FAERS Safety Report 6368825-3 (Version None)
Quarter: 2009Q3

REPORT INFORMATION
  Report Type: 
  Country: None (occurrence: None)
  Receive Date: 20090922
  Receipt Date: 20090910
  Transmission Date: 20100115
  Serious: No
  Sender: FDA-Public Use
  Company Number: US-ELI_LILLY_AND_COMPANY-US200909002628

PATIENT
  Age: 52 Year
  Sex: Male

DRUGS (3)
  1. CYMBALTA [Suspect]
     Dosage: 60 MG, UNK
     Dates: start: 20080101
  2. ABILIFY [Concomitant]
  3. ANTIHYPERTENSIVES [Concomitant]
     Indication: BLOOD PRESSURE

REACTIONS (1)
  - HEPATIC ENZYME INCREASED [None]
